FAERS Safety Report 25960280 (Version 1)
Quarter: 2025Q4

REPORT INFORMATION
  Report Type: Spontaneous
  Country: CN (occurrence: CN)
  Receive Date: 20251026
  Receipt Date: 20251026
  Transmission Date: 20260117
  Serious: Yes (Hospitalization, Disabling)
  Sender: ABBVIE
  Company Number: CN-PFIZER INC-PV202500124088

PATIENT
  Age: 81 Year
  Sex: Female

DRUGS (1)
  1. AVIBACTAM SODIUM\CEFTAZIDIME [Suspect]
     Active Substance: AVIBACTAM SODIUM\CEFTAZIDIME
     Indication: Pneumonia
     Dosage: 2.5 G, 3X/DAY?AVIBACTAM SODIUM STRENGTH: 0.5 G ?CEFTAZIDIME PENTAHYDRATE STRENGTH: 2 G
     Route: 042
     Dates: start: 20251012, end: 20251017

REACTIONS (1)
  - Platelet count decreased [Recovering/Resolving]

NARRATIVE: CASE EVENT DATE: 20251014
